FAERS Safety Report 11773325 (Version 1)
Quarter: 2015Q4

REPORT INFORMATION
  Report Type: Other
  Country: US (occurrence: US)
  Receive Date: 20151124
  Receipt Date: 20151124
  Transmission Date: 20160304
  Serious: Yes (Death)
  Sender: FDA-Public Use
  Company Number: US-NEXGEN PHARMA, INC.-1044564

PATIENT
  Age: 50 Year
  Sex: Male

DRUGS (1)
  1. CHENODAL [Suspect]
     Active Substance: CHENODIOL
     Indication: TYPE V HYPERLIPIDAEMIA
     Dates: start: 20100120, end: 20151114

REACTIONS (1)
  - Death [Unknown]
